FAERS Safety Report 24904364 (Version 1)
Quarter: 2025Q1

REPORT INFORMATION
  Report Type: Spontaneous
  Country: US (occurrence: None)
  Receive Date: 20250130
  Receipt Date: 20250130
  Transmission Date: 20250409
  Serious: Yes (Death, Hospitalization)
  Sender: FDA-CTU
  Company Number: None

PATIENT
  Sex: Male
  Weight: 73.5 kg

DRUGS (4)
  1. FLUOROURACIL [Suspect]
     Active Substance: FLUOROURACIL
     Dates: end: 20250106
  2. LEUCOVORIN CALCIUM [Suspect]
     Active Substance: LEUCOVORIN CALCIUM
     Dates: end: 20250106
  3. NIVOLUMAB [Suspect]
     Active Substance: NIVOLUMAB
     Dates: end: 20250106
  4. ELOXATIN [Suspect]
     Active Substance: OXALIPLATIN
     Dates: end: 20250106

REACTIONS (12)
  - Pulmonary embolism [None]
  - Lymphadenopathy mediastinal [None]
  - Chest pain [None]
  - Infusion related reaction [None]
  - Agitation [None]
  - Atrial fibrillation [None]
  - Pleural effusion [None]
  - Lethargy [None]
  - Hypotension [None]
  - Hospice care [None]
  - Cardiac arrest [None]
  - Pulmonary oedema [None]

NARRATIVE: CASE EVENT DATE: 20250120
